FAERS Safety Report 6380991-2 (Version None)
Quarter: 2009Q3

REPORT INFORMATION
  Report Type: 
  Country: None (occurrence: None)
  Receive Date: 20090925
  Receipt Date: 20090925
  Transmission Date: 20100115
  Serious: Yes (Death)
  Sender: FDA-Public Use
  Company Number: None

PATIENT
  Age: 44 Year
  Sex: Female
  Weight: 72.5755 kg

DRUGS (3)
  1. ORTHO EVRA [Suspect]
     Indication: CONTRACEPTION
     Dosage: 1 PATCH WEEKLY TRANSDERMAL
     Route: 062
  2. ORTHO EVRA [Suspect]
     Indication: OESTROGEN REPLACEMENT THERAPY
     Dosage: 1 PATCH WEEKLY TRANSDERMAL
     Route: 062
  3. ORTHO EVRA [Suspect]
     Indication: OVARIAN FAILURE
     Dosage: 1 PATCH WEEKLY TRANSDERMAL
     Route: 062

REACTIONS (5)
  - ABDOMINAL PAIN [None]
  - CARDIAC ARREST [None]
  - INTRACARDIAC THROMBUS [None]
  - PULMONARY EMBOLISM [None]
  - UNRESPONSIVE TO STIMULI [None]
